FAERS Safety Report 7705289-9 (Version None)
Quarter: 2011Q3

REPORT INFORMATION
  Report Type: 
  Country: None (occurrence: None)
  Receive Date: 20110818
  Receipt Date: 20110812
  Transmission Date: 20111222
  Serious: Yes (Death, Life-Threatening, Hospitalization)
  Sender: FDA-Public Use
  Company Number: 2011MA010856

PATIENT
  Age: 77 Year
  Sex: Male

DRUGS (1)
  1. RIFAMPIN [Suspect]
     Indication: CATHETER SITE INFECTION
     Dosage: IV
     Route: 042

REACTIONS (5)
  - MULTI-ORGAN DISORDER [None]
  - DIFFUSE ALVEOLAR DAMAGE [None]
  - EOSINOPHILIC PNEUMONIA [None]
  - TACHYCARDIA [None]
  - LUNG INFILTRATION [None]
